FAERS Safety Report 19609750 (Version 1)
Quarter: 2021Q3

REPORT INFORMATION
  Report Type: Spontaneous
  Country: SA (occurrence: SA)
  Receive Date: 20210726
  Receipt Date: 20210726
  Transmission Date: 20211014
  Serious: Yes (Death, Other)
  Sender: FDA-Public Use
  Company Number: SA-PFIZER INC-2021635742

PATIENT
  Age: 16 Month
  Sex: Male
  Weight: 7.1 kg

DRUGS (6)
  1. TOCILIZUMAB. [Suspect]
     Active Substance: TOCILIZUMAB
     Indication: COVID-19
     Dosage: 12 MG/KG (REPEATED WITHIN 12 H)
     Dates: start: 20200516
  2. AZITHROMYCIN ANHYDROUS. [Suspect]
     Active Substance: AZITHROMYCIN ANHYDROUS
     Dosage: 5 MG/KG, ONCE DAILY ON DAYS 2?5
     Dates: start: 20200517
  3. HYDROXYCHLOROQUINE [Suspect]
     Active Substance: HYDROXYCHLOROQUINE
     Indication: COVID-19
     Dosage: 6.5 MG/KG, 2X/DAY (TWICE DAILY FOR DAY 1)
     Dates: start: 20200516
  4. HYDROXYCHLOROQUINE [Suspect]
     Active Substance: HYDROXYCHLOROQUINE
     Dosage: 3.25 MG/KG, 2X/DAY (TWICE DAILY FOR 5 DAYS)
     Dates: start: 20200516
  5. AZITHROMYCIN ANHYDROUS. [Suspect]
     Active Substance: AZITHROMYCIN ANHYDROUS
     Indication: COVID-19
     Dosage: 10 MG/KG ON DAY 1
     Dates: start: 20200516
  6. IMMUNOGLOBULIN HUMAN NORMAL [Suspect]
     Active Substance: HUMAN IMMUNOGLOBULIN G
     Indication: MYOCARDITIS
     Dosage: UNK (TOTAL DOSE OF 2 G/KG)
     Route: 042
     Dates: start: 20200516

REACTIONS (5)
  - Shock [Fatal]
  - Off label use [Unknown]
  - Multiple organ dysfunction syndrome [Fatal]
  - Hypoxia [Fatal]
  - Cardiac arrest [Fatal]

NARRATIVE: CASE EVENT DATE: 202005
